FAERS Safety Report 4515354-5 (Version None)
Quarter: 2004Q4

REPORT INFORMATION
  Report Type: 
  Country: None (occurrence: None)
  Receive Date: 20041029
  Receipt Date: 20040913
  Transmission Date: 20050328
  Serious: No
  Sender: FDA-Public Use
  Company Number: 200416464US

PATIENT
  Age: 48 Year
  Sex: Female
  Weight: 86.4 kg

DRUGS (4)
  1. KETEK [Suspect]
     Indication: SINUSITIS
     Dosage: 800 MG QD
     Dates: start: 20040808, end: 20040813
  2. ESTRADIOL (VIVELLE) [Concomitant]
  3. AMOXICILLIN [Concomitant]
  4. OMNICEF [Concomitant]

REACTIONS (5)
  - DIARRHOEA [None]
  - DRUG INEFFECTIVE [None]
  - NAUSEA [None]
  - VISION BLURRED [None]
  - VOMITING [None]
